FAERS Safety Report 6940745-2 (Version None)
Quarter: 2010Q3

REPORT INFORMATION
  Report Type: 
  Country: None (occurrence: None)
  Receive Date: 20100825
  Receipt Date: 20100527
  Transmission Date: 20110219
  Serious: No
  Sender: FDA-Public Use
  Company Number: US-MYLANLABS-2010S1006656

PATIENT
  Age: 47 Year
  Sex: Female

DRUGS (2)
  1. CLORAZEPATE DIPOTASSIUM [Suspect]
     Indication: INSOMNIA
     Route: 048
  2. CLORAZEPATE DIPOTASSIUM [Suspect]
     Route: 048

REACTIONS (1)
  - DRUG SCREEN FALSE POSITIVE [None]
